FAERS Safety Report 12091838 (Version 1)
Quarter: 2016Q1

REPORT INFORMATION
  Report Type: Spontaneous
  Country: FR (occurrence: FR)
  Receive Date: 20160218
  Receipt Date: 20160218
  Transmission Date: 20160526
  Serious: Yes (Hospitalization)
  Sender: FDA-Public Use
  Company Number: FR-ROCHE-1712874

PATIENT
  Age: 35 Year
  Sex: Female

DRUGS (13)
  1. AUGMENTIN [Suspect]
     Active Substance: AMOXICILLIN\CLAVULANATE POTASSIUM
     Indication: ANAL ABSCESS
     Route: 065
     Dates: start: 20151106, end: 20151125
  2. DILTIAZEM [Concomitant]
     Active Substance: DILTIAZEM
     Dosage: USUAL THERAPY
     Route: 048
  3. HYDROCHLOROTHIAZIDE. [Concomitant]
     Active Substance: HYDROCHLOROTHIAZIDE
     Dosage: USUAL THERAPY
     Route: 048
  4. ROCEPHINE [Suspect]
     Active Substance: CEFTRIAXONE SODIUM
     Indication: ANAL ABSCESS
     Route: 042
     Dates: start: 20151125
  5. PREDNISONE. [Concomitant]
     Active Substance: PREDNISONE
     Dosage: USUAL THERAPY
     Route: 048
  6. CLOPIDOGREL [Concomitant]
     Active Substance: CLOPIDOGREL BISULFATE
     Dosage: USUAL THERAPY
     Route: 048
  7. PREGABALINE [Concomitant]
     Active Substance: PREGABALIN
     Dosage: USUAL THERAPY
     Route: 048
  8. OMEPRAZOLE. [Concomitant]
     Active Substance: OMEPRAZOLE
     Dosage: USUAL THERAPY
     Route: 048
  9. FLAGYL [Suspect]
     Active Substance: METRONIDAZOLE\METRONIDAZOLE HYDROCHLORIDE
     Indication: ANAL ABSCESS
     Route: 042
     Dates: start: 20151125
  10. HYDROXYCHLOROQUINE [Concomitant]
     Active Substance: HYDROXYCHLOROQUINE
     Dosage: USUAL THERAPY
     Route: 048
  11. NOVORAPID [Concomitant]
     Active Substance: INSULIN ASPART
     Dosage: USUAL THERAPY
     Route: 058
  12. KETOPROFEN. [Concomitant]
     Active Substance: KETOPROFEN
     Route: 048
     Dates: start: 20151125
  13. LEVEMIR [Concomitant]
     Active Substance: INSULIN DETEMIR
     Dosage: USUAL THERAPY
     Route: 058

REACTIONS (1)
  - Hepatitis acute [Recovered/Resolved]

NARRATIVE: CASE EVENT DATE: 20151130
